FAERS Safety Report 9789884 (Version 1)
Quarter: 2013Q4

REPORT INFORMATION
  Report Type: Spontaneous
  Country: US (occurrence: None)
  Receive Date: 20131230
  Receipt Date: 20131230
  Transmission Date: 20140711
  Serious: No
  Sender: FDA-Public Use
  Company Number: None

PATIENT
  Age: 62 Year
  Sex: Male
  Weight: 127.01 kg

DRUGS (10)
  1. RANEXA [Suspect]
     Indication: RESPIRATORY DISORDER
     Route: 048
     Dates: start: 20131113, end: 20131125
  2. AMLODIPINE BESYLATE [Concomitant]
  3. VALSARTAN HCTZ [Concomitant]
  4. METFORMIN HCL [Concomitant]
  5. SIMVASTATIN [Concomitant]
  6. ATENOLOL [Concomitant]
  7. CLOPIDOGREL [Concomitant]
  8. ASPRIN [Concomitant]
  9. EQUATE COMPLETE MUTIVITAMINS [Concomitant]
  10. OVNOL ULTRA COQ10 [Concomitant]

REACTIONS (3)
  - Decreased appetite [None]
  - Thirst decreased [None]
  - Weight decreased [None]
